FAERS Safety Report 15475959 (Version 4)
Quarter: 2020Q1

REPORT INFORMATION
  Report Type: Spontaneous
  Country: DE (occurrence: DE)
  Receive Date: 20181009
  Receipt Date: 20200222
  Transmission Date: 20200409
  Serious: Yes (Death, Life-Threatening, Hospitalization)
  Sender: FDA-Public Use
  Company Number: PHHY2018DE117145

PATIENT
  Age: 58 Year
  Sex: Male
  Weight: 84 kg

DRUGS (16)
  1. ABRAXANE [Suspect]
     Active Substance: PACLITAXEL
     Indication: NON-SMALL CELL LUNG CANCER
     Dosage: 100 MG/M2, QD (INTRAVENOUS INFUSION)
     Route: 041
     Dates: start: 20161220
  2. CEFUROXIM [Concomitant]
     Active Substance: CEFUROXIME
     Indication: INFLAMMATION
     Dosage: 1000 MG, QD
     Route: 048
     Dates: start: 20170419, end: 20170423
  3. PHENYTOIN. [Concomitant]
     Active Substance: PHENYTOIN
     Indication: PROPHYLAXIS
     Dosage: 100 MG, QD
     Route: 048
     Dates: start: 20170220
  4. ONDANSETRON [Concomitant]
     Active Substance: ONDANSETRON
     Indication: PROPHYLAXIS
     Dosage: 8 MG, UNK
     Route: 048
     Dates: start: 20161220, end: 20170529
  5. CIPROFLOXACIN ABZ [Concomitant]
     Indication: C-REACTIVE PROTEIN INCREASED
     Dosage: 1000 MG, QD
     Route: 048
     Dates: start: 20170113, end: 20170122
  6. METAMIZOLE [Concomitant]
     Active Substance: METAMIZOLE
     Indication: METASTASES TO BONE
     Dosage: 25 MG
     Route: 041
     Dates: start: 20170407, end: 20170421
  7. GRANISETRON [Concomitant]
     Active Substance: GRANISETRON
     Indication: PROPHYLAXIS
     Dosage: 3 MG
     Route: 041
     Dates: start: 20161220, end: 20170529
  8. DEXAMETHASONE. [Concomitant]
     Active Substance: DEXAMETHASONE
     Indication: PROPHYLAXIS
     Dosage: 8 MG
     Route: 041
     Dates: start: 20161220, end: 20170529
  9. ZOMETA [Concomitant]
     Active Substance: ZOLEDRONIC ACID
     Indication: METASTASES TO BONE
     Dosage: 4 MG, QMO
     Route: 041
     Dates: start: 20161205, end: 20170529
  10. MOTILIUM [Concomitant]
     Active Substance: DOMPERIDONE
     Indication: PROPHYLAXIS
     Dosage: 2 ML
     Route: 048
     Dates: start: 20161220, end: 20170529
  11. CARBOPLATIN. [Suspect]
     Active Substance: CARBOPLATIN
     Indication: NON-SMALL CELL LUNG CANCER
     Dosage: 5 MGXMIN/ML
     Route: 041
     Dates: start: 20161220, end: 20170522
  12. ABRAXANE [Suspect]
     Active Substance: PACLITAXEL
     Dosage: 100 MG/M2, QD
     Route: 041
     Dates: start: 20170323, end: 20170330
  13. EMEND [Concomitant]
     Active Substance: APREPITANT
     Indication: PROPHYLAXIS
     Dosage: 150 MG
     Route: 041
     Dates: start: 20161220, end: 20170529
  14. TUTOFUSIN [Concomitant]
     Indication: URINARY RETENTION
     Dosage: 1000 ML, UNK
     Route: 041
     Dates: start: 20170505, end: 20170505
  15. ABRAXANE [Suspect]
     Active Substance: PACLITAXEL
     Dosage: 100 MG/M2, QD
     Route: 041
     Dates: start: 20170502, end: 20170522
  16. LONQUEX [Concomitant]
     Active Substance: LIPEGFILGRASTIM
     Indication: PROPHYLAXIS
     Dosage: 6 MG
     Route: 065
     Dates: start: 20170120

REACTIONS (4)
  - Dry skin [Unknown]
  - General physical health deterioration [Fatal]
  - Polyneuropathy [Unknown]
  - Back pain [Recovered/Resolved]

NARRATIVE: CASE EVENT DATE: 20170418
